FAERS Safety Report 7089338-X (Version None)
Quarter: 2010Q4

REPORT INFORMATION
  Report Type: 
  Country: None (occurrence: None)
  Receive Date: 20101108
  Receipt Date: 20101031
  Transmission Date: 20110411
  Serious: No
  Sender: FDA-Public Use
  Company Number: US-B.I. PHARMACEUTICALS,INC./RIDGEFIELD-2010-BP-12190BP

PATIENT
  Sex: Male

DRUGS (1)
  1. ZANTAC 150 [Suspect]
     Indication: DYSPEPSIA
     Dosage: 1350 MG
     Route: 048
     Dates: start: 20101031

REACTIONS (3)
  - DIARRHOEA [None]
  - DRUG INEFFECTIVE [None]
  - VOMITING [None]
